FAERS Safety Report 4698025-4 (Version None)
Quarter: 2005Q2

REPORT INFORMATION
  Report Type: 
  Country: None (occurrence: None)
  Receive Date: 20050621
  Receipt Date: 20050608
  Transmission Date: 20051028
  Serious: Yes (Life-Threatening, Hospitalization, Other)
  Sender: FDA-Public Use
  Company Number: BRO-008697

PATIENT
  Age: 66 Year
  Sex: Male

DRUGS (17)
  1. IOPAMIDOL [Suspect]
     Indication: COMPUTERISED TOMOGRAM
     Dosage: 90 ML, SY
     Dates: start: 20050223, end: 20050223
  2. IOPAMIDOL [Suspect]
     Indication: DYSPHAGIA
     Dosage: 100 ML, SY
     Dates: start: 20050322, end: 20050322
  3. ATARAX [Suspect]
     Indication: COMPUTERISED TOMOGRAM
     Dosage: PO
     Route: 048
     Dates: start: 20030310
  4. ALLOPURINOL [Suspect]
     Indication: PNEUMONIA
  5. AUGMENTIN '125' [Suspect]
     Indication: PNEUMONIA
     Dosage: PO
     Route: 048
     Dates: start: 20050223
  6. OFLOXACIN [Suspect]
     Dosage: PO
     Route: 048
     Dates: start: 20050308, end: 20050321
  7. PANTOPRAZOLE / EUPANTOL 40 MG [Suspect]
     Dosage: PO
     Route: 048
     Dates: start: 20050322, end: 20050322
  8. BARIUM SULFATE / MICROPAQUE [Suspect]
     Dates: start: 20050223
  9. ELISOR ( PRAVASTATIN SODUIM) [Concomitant]
  10. COVERSYL ( PERINDOPRIL) [Concomitant]
  11. FORLAX ( MACROGOL) [Concomitant]
  12. EDUCTYL [Concomitant]
  13. DUROGESIC ( FENTANYL) [Concomitant]
  14. LOVENOX [Concomitant]
  15. CORTANCYL (PREDNISONE) [Concomitant]
  16. MORPHINE SULFATE [Concomitant]
  17. NUTRISON [Concomitant]

REACTIONS (7)
  - ATRIAL FIBRILLATION [None]
  - FEBRILE CONVULSION [None]
  - GENERAL PHYSICAL HEALTH DETERIORATION [None]
  - OESOPHAGEAL STENOSIS [None]
  - PLEURAL EFFUSION [None]
  - TOXIC EPIDERMAL NECROLYSIS [None]
  - TOXIC SKIN ERUPTION [None]
